FAERS Safety Report 19573335 (Version 4)
Quarter: 2021Q3

REPORT INFORMATION
  Report Type: Report from Study
  Country: JP (occurrence: JP)
  Receive Date: 20210717
  Receipt Date: 20210830
  Transmission Date: 20211014
  Serious: Yes (Hospitalization)
  Sender: FDA-Public Use
  Company Number: JP-BRISTOL-MYERS SQUIBB COMPANY-BMS-2021-069245

PATIENT
  Age: 68 Year
  Sex: Female
  Weight: 39 kg

DRUGS (17)
  1. NIVOLUMAB [Suspect]
     Active Substance: NIVOLUMAB
     Indication: OESOPHAGEAL CARCINOMA
     Dosage: 240 MILLIGRAM
     Route: 041
     Dates: start: 20210526
  2. 5?FLUOROURACIL [Suspect]
     Active Substance: FLUOROURACIL
     Indication: OESOPHAGEAL CARCINOMA
     Dosage: 1000 MG/M2/DAY, DAY1?DAY4
     Route: 065
     Dates: start: 20210526
  3. MAGMITT [Concomitant]
     Active Substance: MAGNESIUM OXIDE
     Indication: CONSTIPATION
     Dosage: 660 MG, PRN
     Route: 048
     Dates: start: 20210625
  4. CISPLATIN. [Suspect]
     Active Substance: CISPLATIN
     Indication: OESOPHAGEAL CARCINOMA
     Dosage: 75 MG/M2/DAY
     Route: 065
     Dates: start: 20210526
  5. CILNIDIPINE [Concomitant]
     Active Substance: CILNIDIPINE
     Indication: HYPERTENSION
     Dosage: 10 MG, EVERYDAY
     Route: 048
  6. NEXIUM [Concomitant]
     Active Substance: ESOMEPRAZOLE MAGNESIUM
     Indication: DUODENAL ULCER
     Dosage: 20 MG, EVERYDAY
     Route: 048
     Dates: start: 20210524
  7. CISPLATIN. [Suspect]
     Active Substance: CISPLATIN
     Dosage: 37.5 MG/M2/DAY
     Route: 065
     Dates: start: 20210730
  8. ALLOPURINOL. [Concomitant]
     Active Substance: ALLOPURINOL
     Indication: PROPHYLAXIS
     Dosage: 100 MG, PRN
     Route: 002
     Dates: start: 20210525
  9. HEPARINOID [Concomitant]
     Active Substance: CHONDROITIN SULFATE (BOVINE)
     Indication: SKIN DISORDER PROPHYLAXIS
     Dosage: APPROPRIATE AMOUNT, Q12H
     Route: 061
     Dates: start: 20210527
  10. 5?FLUOROURACIL [Suspect]
     Active Substance: FLUOROURACIL
     Dosage: 500 MG/M2/DAY
     Route: 065
     Dates: start: 20210730
  11. HALCION [Concomitant]
     Active Substance: TRIAZOLAM
     Indication: INSOMNIA
     Dosage: 0.25 MG, PRN
     Route: 048
  12. CISPLATIN. [Suspect]
     Active Substance: CISPLATIN
     Dosage: 37.5 MG/M2/DAY
     Route: 065
     Dates: start: 20210623
  13. 5?FLUOROURACIL [Suspect]
     Active Substance: FLUOROURACIL
     Dosage: 750 MG/M2/DAY
     Route: 065
     Dates: start: 20210623
  14. PIRENOXINE [Concomitant]
     Active Substance: PIRENOXINE
     Indication: CATARACT
     Dosage: APPROPRIATE AMOUNT, Q12H
     Route: 047
     Dates: start: 20210604
  15. AZUNOL [SODIUM GUALENATE] [Concomitant]
     Active Substance: SODIUM GUALENATE
     Indication: PROPHYLAXIS
     Dosage: APPROPRIATE AMOUNT Q8H
     Route: 002
     Dates: start: 20210525
  16. NIVOLUMAB [Suspect]
     Active Substance: NIVOLUMAB
     Dosage: UNK
     Route: 041
     Dates: start: 20210730
  17. NIVOLUMAB [Suspect]
     Active Substance: NIVOLUMAB
     Dosage: UNK
     Route: 041
     Dates: start: 20210810

REACTIONS (1)
  - Oesophagitis [Recovering/Resolving]

NARRATIVE: CASE EVENT DATE: 20210709
